FAERS Safety Report 9808276 (Version 1)
Quarter: 2014Q1

REPORT INFORMATION
  Report Type: Spontaneous
  Country: US (occurrence: US)
  Receive Date: 20140110
  Receipt Date: 20140110
  Transmission Date: 20141002
  Serious: Yes (Other)
  Sender: FDA-Public Use
  Company Number: US-ASTRAZENECA-2014SE00688

PATIENT
  Age: 65 Year
  Sex: Male
  Weight: 84.4 kg

DRUGS (1)
  1. SYMBICORT [Suspect]
     Indication: CHRONIC OBSTRUCTIVE PULMONARY DISEASE
     Dosage: 160, FREQUENCY UNKNOWN
     Route: 055

REACTIONS (1)
  - Stevens-Johnson syndrome [Unknown]
